FAERS Safety Report 21431976 (Version 1)
Quarter: 2022Q4

REPORT INFORMATION
  Report Type: Spontaneous
  Country: JP (occurrence: JP)
  Receive Date: 20221009
  Receipt Date: 20221009
  Transmission Date: 20230113
  Serious: Yes (Other)
  Sender: FDA-Public Use
  Company Number: JP-KYOWAKIRIN-2022AKK015330

PATIENT

DRUGS (4)
  1. PEGFILGRASTIM [Suspect]
     Active Substance: PEGFILGRASTIM
     Indication: Colony stimulating factor therapy
     Dosage: UNK
     Route: 065
  2. FLUOROURACIL [Suspect]
     Active Substance: FLUOROURACIL
     Indication: Oesophageal squamous cell carcinoma
     Dosage: 750-800 MG/M2, ON DAYS 1-5, Q4WK
     Route: 065
     Dates: start: 201209, end: 202005
  3. CISPLATIN [Suspect]
     Active Substance: CISPLATIN
     Indication: Oesophageal squamous cell carcinoma
     Dosage: 60-70 MG/M2, ON DAY 1, Q4WK
     Route: 065
     Dates: start: 201209, end: 202005
  4. DOCETAXEL [Concomitant]
     Active Substance: DOCETAXEL
     Indication: Oesophageal squamous cell carcinoma
     Dosage: 60-70 MG/M2, ON DAY 1, Q4WK
     Route: 065
     Dates: start: 201209, end: 202005

REACTIONS (3)
  - Febrile neutropenia [Unknown]
  - Neutropenia [Unknown]
  - Leukopenia [Unknown]
